FAERS Safety Report 14614674 (Version 1)
Quarter: 2018Q1

REPORT INFORMATION
  Report Type: Spontaneous
  Country: FR (occurrence: FR)
  Receive Date: 20180308
  Receipt Date: 20180308
  Transmission Date: 20180509
  Serious: Yes (Other)
  Sender: FDA-Public Use
  Company Number: FR-SHIRE-FR201807499

PATIENT

DRUGS (1)
  1. HUMAN NORMAL IMMUNOGLOBULIN [Suspect]
     Active Substance: HUMAN IMMUNOGLOBULIN G
     Indication: MILLER FISHER SYNDROME
     Dosage: UNK
     Route: 065

REACTIONS (1)
  - Drug effect incomplete [Unknown]
